FAERS Safety Report 11975813 (Version 1)
Quarter: 2016Q1

REPORT INFORMATION
  Report Type: Report from Study
  Country: IT (occurrence: IT)
  Receive Date: 20160129
  Receipt Date: 20160129
  Transmission Date: 20160526
  Serious: Yes (Death)
  Sender: FDA-Public Use
  Company Number: IT-ROCHE-1702239

PATIENT
  Age: 61 Year
  Sex: Male
  Weight: 72 kg

DRUGS (4)
  1. FLUOROURACIL. [Suspect]
     Active Substance: FLUOROURACIL
     Indication: COLORECTAL CANCER METASTATIC
     Dosage: DAT OF LAST DOSE PRIOR TO SAE: 02/FEB/2010
     Route: 042
     Dates: start: 20100119, end: 20100204
  2. BEVACIZUMAB [Suspect]
     Active Substance: BEVACIZUMAB
     Indication: COLORECTAL CANCER METASTATIC
     Dosage: DAT OF LAST DOSE PRIOR TO SAE: 02/FEB/2010
     Route: 042
     Dates: start: 20100119, end: 20100202
  3. IRINOTECAN [Suspect]
     Active Substance: IRINOTECAN
     Indication: COLORECTAL CANCER METASTATIC
     Dosage: DAT OF LAST DOSE PRIOR TO SAE: 02/FEB/2010
     Route: 042
     Dates: start: 20100119, end: 20100202
  4. OXALIPLATIN. [Suspect]
     Active Substance: OXALIPLATIN
     Indication: COLORECTAL CANCER METASTATIC
     Dosage: DAT OF LAST DOSE PRIOR TO SAE: 02/FEB/2010
     Route: 042
     Dates: start: 20100119, end: 20100202

REACTIONS (1)
  - Pulmonary embolism [Fatal]

NARRATIVE: CASE EVENT DATE: 20100220
